FAERS Safety Report 4615375-8 (Version None)
Quarter: 2005Q1

REPORT INFORMATION
  Report Type: 
  Country: None (occurrence: None)
  Receive Date: 20050317
  Receipt Date: 20050303
  Transmission Date: 20050727
  Serious: Yes (Other)
  Sender: FDA-Public Use
  Company Number: DEU-2005-0001294

PATIENT
  Age: 70 Year
  Sex: Male

DRUGS (2)
  1. OXYGESIC 20 MG (OXYCODONE HYDROCHLORIDE) CR TABLET [Suspect]
     Indication: PAIN
     Dosage: ORAL
     Route: 048
     Dates: start: 20040101
  2. PREDNISONE TAB [Concomitant]

REACTIONS (4)
  - MINERAL DEFICIENCY [None]
  - TOOTH DISORDER [None]
  - TOOTH EROSION [None]
  - TOOTH LOSS [None]
